FAERS Safety Report 6150055-1 (Version None)
Quarter: 2009Q2

REPORT INFORMATION
  Report Type: 
  Country: None (occurrence: None)
  Receive Date: 20090407
  Receipt Date: 20090330
  Transmission Date: 20091009
  Serious: Yes (Hospitalization)
  Sender: FDA-Public Use
  Company Number: ADE2009-0521

PATIENT
  Age: 82 Year
  Sex: Male

DRUGS (12)
  1. CARVEDILOL [Suspect]
     Dosage: ORAL
     Route: 048
  2. PAROXETINE HCL [Suspect]
     Indication: DEPRESSION
     Dosage: 40MG - DAILY - ORAL
     Route: 048
     Dates: start: 20090127, end: 20090309
  3. DIAZEPAM [Suspect]
  4. DIGOXIN [Suspect]
     Dosage: ORAL
     Route: 048
  5. FUROSEMIDE [Suspect]
  6. CLARITHROMYCIN [Suspect]
     Dosage: ORAL
     Route: 048
  7. SALMETEROL [Suspect]
     Dosage: INHALATION
     Route: 055
  8. SULPIRIDE [Suspect]
  9. THEOPHYLLINE [Suspect]
     Dosage: ORAL
     Route: 048
  10. TIOTROPIUM BROMIDE [Suspect]
     Dosage: INHALATION
     Route: 055
  11. VERAPAMIL [Suspect]
  12. DANTROLENE SODIUM [Concomitant]

REACTIONS (2)
  - CONVULSION [None]
  - NEUROLEPTIC MALIGNANT SYNDROME [None]
